FAERS Safety Report 5553679-5 (Version None)
Quarter: 2007Q4

REPORT INFORMATION
  Report Type: 
  Country: None (occurrence: None)
  Receive Date: 20071213
  Receipt Date: 20071203
  Transmission Date: 20080405
  Serious: Yes (Other)
  Sender: FDA-Public Use
  Company Number: GB-ALLERGAN-0713608US

PATIENT
  Age: 24 Year
  Sex: Female
  Weight: 110.4 kg

DRUGS (10)
  1. BOTOX [Suspect]
     Indication: ANAL FISSURE
     Dosage: 75 UNITS, UNK
     Route: 030
     Dates: start: 20071113, end: 20071113
  2. EPHEDRINE [Concomitant]
     Indication: ANAESTHESIA
     Dosage: 6 MG, UNK
     Dates: start: 20071113
  3. FENTANYL [Concomitant]
     Indication: ANAESTHESIA
  4. FYBOGEL [Concomitant]
     Indication: DRUG USE FOR UNKNOWN INDICATION
  5. MIVACURIUM [Concomitant]
     Indication: DRUG USE FOR UNKNOWN INDICATION
     Dates: start: 20071113
  6. PROPOFOL [Concomitant]
     Indication: ANAESTHESIA
     Dates: start: 20071113
  7. QUETIAPINE [Concomitant]
     Indication: DEPRESSION
     Dosage: 300 MG, UNK
     Route: 048
  8. SERETIDE [Concomitant]
     Indication: DRUG USE FOR UNKNOWN INDICATION
     Dosage: 250 UG, UNK
     Route: 055
  9. VENLAFAXINE HCL [Concomitant]
     Indication: DRUG USE FOR UNKNOWN INDICATION
     Dosage: 150 MG, UNK
     Route: 048
  10. VENTOLIN [Concomitant]
     Indication: DRUG USE FOR UNKNOWN INDICATION
     Dosage: 100 UG, UNK
     Route: 055

REACTIONS (4)
  - HEADACHE [None]
  - NAUSEA [None]
  - SOMNOLENCE [None]
  - URINARY RETENTION [None]
